FAERS Safety Report 4563767-8 (Version None)
Quarter: 2005Q1

REPORT INFORMATION
  Report Type: 
  Country: None (occurrence: None)
  Receive Date: 20050128
  Receipt Date: 20040309
  Transmission Date: 20050727
  Serious: Yes (Hospitalization)
  Sender: FDA-Public Use
  Company Number: DE-BRISTOL-MYERS SQUIBB COMPANY-12528170

PATIENT
  Age: 60 Year
  Sex: Male
  Weight: 81 kg

DRUGS (6)
  1. PACLITAXEL [Suspect]
     Indication: NON-SMALL CELL LUNG CANCER
     Dosage: THERAPY DATES: OCT-2003 TO 05-FEB-2004
     Route: 042
     Dates: start: 20040205, end: 20040205
  2. CARBOPLATIN [Suspect]
     Indication: NON-SMALL CELL LUNG CANCER
     Dosage: AUC 6 / THERAPY DATES: OCT-2003 TO 05-FEB-2004
     Route: 042
     Dates: start: 20040205, end: 20040205
  3. TRAMADOL HCL [Concomitant]
  4. FRAXIPARINE [Concomitant]
  5. PANTOZOL [Concomitant]
  6. NEUPOGEN [Concomitant]

REACTIONS (4)
  - DEHYDRATION [None]
  - NAUSEA [None]
  - NEUTROPENIA [None]
  - VOMITING [None]
